FAERS Safety Report 11927839 (Version 1)
Quarter: 2016Q1

REPORT INFORMATION
  Report Type: Report from Study
  Country: US (occurrence: FI)
  Receive Date: 20160119
  Receipt Date: 20160119
  Transmission Date: 20160526
  Serious: Yes (Hospitalization)
  Sender: FDA-Public Use
  Company Number: FI-AKRON, INC.-1046606

PATIENT
  Age: 71 Year
  Sex: Male

DRUGS (10)
  1. BURANA [Concomitant]
     Active Substance: IBUPROFEN
     Dates: start: 20080429
  2. OFTAGEL [Concomitant]
     Active Substance: CARBOMER
     Dates: start: 2008
  3. PRIMASPAN [Concomitant]
     Active Substance: ASPIRIN
     Dates: start: 2004
  4. ZIOPTAN [Suspect]
     Active Substance: TAFLUPROST
     Indication: GLAUCOMA
     Route: 047
     Dates: start: 20080213, end: 20080519
  5. XATRAL (ALFUZOSIN HYDROCHLORIDE) [Concomitant]
     Dates: start: 1998
  6. FOSAVANCE [Concomitant]
     Active Substance: ALENDRONATE SODIUM\CHOLECALCIFEROL
  7. LYRICA [Concomitant]
     Active Substance: PREGABALIN
     Dates: start: 2004
  8. ARTELAC [Concomitant]
     Active Substance: HYPROMELLOSES
     Dates: start: 2003
  9. LIPITOR [Concomitant]
     Active Substance: ATORVASTATIN CALCIUM
     Dates: start: 2002
  10. NEXIUM [Concomitant]
     Active Substance: ESOMEPRAZOLE MAGNESIUM
     Dates: start: 2002

REACTIONS (1)
  - Testicular cyst [Unknown]

NARRATIVE: CASE EVENT DATE: 20080429
